FAERS Safety Report 6000226-X (Version None)
Quarter: 2008Q4

REPORT INFORMATION
  Report Type: 
  Country: None (occurrence: None)
  Receive Date: 20081211
  Receipt Date: 20081126
  Transmission Date: 20090506
  Serious: Yes (Other)
  Sender: FDA-Public Use
  Company Number: 100#08#2008-06145

PATIENT
  Age: 48 Year
  Sex: Female

DRUGS (2)
  1. CARBAMAZEPINE [Suspect]
     Indication: EPILEPSY
     Dosage: 1500 MG, 750 MG
  2. PREGABALIN (PREGABALIN) [Suspect]
     Indication: EPILEPSY
     Dosage: 300 MG, 150 MG

REACTIONS (4)
  - CENTRAL NERVOUS SYSTEM LESION [None]
  - CYTOTOXIC OEDEMA [None]
  - GAMMA-GLUTAMYLTRANSFERASE INCREASED [None]
  - THROMBOCYTHAEMIA [None]
